FAERS Safety Report 18169020 (Version 5)
Quarter: 2020Q4

REPORT INFORMATION
  Report Type: Spontaneous
  Country: US (occurrence: US)
  Receive Date: 20200819
  Receipt Date: 20201202
  Transmission Date: 20210113
  Serious: No
  Sender: FDA-Public Use
  Company Number: US-PFIZER INC-2020320071

PATIENT
  Age: 61 Year
  Sex: Female

DRUGS (1)
  1. XELJANZ XR [Suspect]
     Active Substance: TOFACITINIB CITRATE
     Dosage: 11 MG
     Dates: start: 20200721, end: 2020

REACTIONS (10)
  - Arthralgia [Unknown]
  - Hand deformity [Unknown]
  - Muscle spasms [Unknown]
  - Rash [Unknown]
  - Arthropathy [Unknown]
  - Nausea [Unknown]
  - Pain in extremity [Unknown]
  - Muscular weakness [Unknown]
  - Blood cholesterol increased [Unknown]
  - Myalgia [Unknown]

NARRATIVE: CASE EVENT DATE: 2020
